FAERS Safety Report 4518359-3 (Version None)
Quarter: 2004Q4

REPORT INFORMATION
  Report Type: 
  Country: None (occurrence: None)
  Receive Date: 20041029
  Receipt Date: 20040917
  Transmission Date: 20050328
  Serious: Yes (Other)
  Sender: FDA-Public Use
  Company Number: 0410020

PATIENT
  Age: 8 Year
  Sex: Female
  Weight: 0.4536 kg

DRUGS (1)
  1. ORFADIN [Suspect]
     Indication: TYROSINAEMIA
     Dosage: 17 MILLIGRAM TWICE DAILY, ORAL
     Route: 048
     Dates: start: 20020626

REACTIONS (4)
  - EYE INFLAMMATION [None]
  - EYE PAIN [None]
  - EYE REDNESS [None]
  - VISION BLURRED [None]
